FAERS Safety Report 8650080 (Version 2)
Quarter: 2013Q3

REPORT INFORMATION
  Report Type: Report from Study
  Country: AR (occurrence: AR)
  Receive Date: 20120705
  Receipt Date: 20130813
  Transmission Date: 20140515
  Serious: Yes (Other)
  Sender: FDA-Public Use
  Company Number: AR-ROCHE-1084041

PATIENT
  Age: 65 Year
  Sex: Male

DRUGS (1)
  1. LUCENTIS [Suspect]
     Indication: PRODUCT USED FOR UNKNOWN INDICATION
     Dosage: DOSE - 1 AMPOULE.
     Route: 050
     Dates: start: 201110, end: 201111

REACTIONS (3)
  - Retinal detachment [Recovering/Resolving]
  - Cataract [Unknown]
  - Eye haemorrhage [Unknown]
